FAERS Safety Report 8591792-9 (Version None)
Quarter: 2012Q3

REPORT INFORMATION
  Report Type: 
  Country: None (occurrence: None)
  Receive Date: 20120814
  Receipt Date: 20120808
  Transmission Date: 20120928
  Serious: Yes (Death)
  Sender: FDA-Public Use
  Company Number: PHEH2012US015450

PATIENT
  Sex: Male

DRUGS (19)
  1. METOPROLOL [Concomitant]
     Dosage: 100 MG, UNK
  2. SYMBICORT [Concomitant]
     Dosage: 160-4.5
  3. FLOVENT [Concomitant]
     Dosage: 110 UG, UNK
  4. PRIMIDONE [Concomitant]
     Dosage: 50 MG, UNK
  5. TOBI [Suspect]
     Dosage: 300MG/5ML
  6. PLAVIX [Concomitant]
     Dosage: 75 MG, UNK
  7. XANAX [Concomitant]
     Dosage: 0.5 MG, UNK
  8. TAMSULOSIN HCL [Concomitant]
     Dosage: 0.4 MG, UNK
  9. PREDNISONE TAB [Concomitant]
     Dosage: 1 MG, UNK
  10. ALBUTEROL [Concomitant]
     Dosage: 90 UG, UNK
  11. AZITHROMYCIN [Concomitant]
     Dosage: 250 MG, UNK
  12. SERTRALINE HYDROCHLORIDE [Concomitant]
     Dosage: 100 MG, UNK
  13. OMEPRAZOLE [Concomitant]
     Dosage: 20 MG, UNK
  14. DEXILANT [Concomitant]
     Dosage: 60 MG, UNK
  15. BACTRIM [Concomitant]
     Dosage: 400-80 MG
  16. ASPIRIN [Concomitant]
     Dosage: 81 MG, UNK
  17. CARDIZEM [Concomitant]
     Dosage: 30 MG, UNK
  18. MUCINEX [Concomitant]
  19. NYSTATIN [Concomitant]
     Dosage: UNK UKN, UNK

REACTIONS (1)
  - DEATH [None]
